FAERS Safety Report 7406408-4 (Version None)
Quarter: 2011Q2

REPORT INFORMATION
  Report Type: 
  Country: None (occurrence: None)
  Receive Date: 20110405
  Receipt Date: 20110405
  Transmission Date: 20111010
  Serious: Yes (Hospitalization)
  Sender: FDA-Public Use
  Company Number: None

PATIENT
  Age: 20 Year
  Sex: Female
  Weight: 99.7913 kg

DRUGS (1)
  1. SINGULAIR [Suspect]

REACTIONS (5)
  - INSOMNIA [None]
  - FLAT AFFECT [None]
  - DISTURBANCE IN ATTENTION [None]
  - HALLUCINATION [None]
  - TREMOR [None]
